FAERS Safety Report 18518977 (Version 4)
Quarter: 2020Q4

REPORT INFORMATION
  Report Type: Report from Study
  Country: US (occurrence: US)
  Receive Date: 20201118
  Receipt Date: 20201228
  Transmission Date: 20210114
  Serious: Yes (Hospitalization, Other)
  Sender: FDA-Public Use
  Company Number: US-JNJFOC-20201114666

PATIENT
  Age: 47 Year
  Sex: Male
  Weight: 60.38 kg

DRUGS (1)
  1. EPOPROSTENOL SODIUM. [Suspect]
     Active Substance: EPOPROSTENOL SODIUM
     Indication: PULMONARY HYPERTENSION
     Route: 042

REACTIONS (9)
  - Cardiac failure congestive [Unknown]
  - Catheter site infection [Unknown]
  - Palpitations [Unknown]
  - Dyspnoea [Unknown]
  - Heart rate increased [Unknown]
  - Catheter management [Unknown]
  - Respiratory distress [Unknown]
  - Diarrhoea [Unknown]
  - Hypoxia [Unknown]

NARRATIVE: CASE EVENT DATE: 20201020
